FAERS Safety Report 15012812 (Version 6)
Quarter: 2019Q1

REPORT INFORMATION
  Report Type: Spontaneous
  Country: GR (occurrence: GR)
  Receive Date: 20180614
  Receipt Date: 20190227
  Transmission Date: 20190417
  Serious: Yes (Hospitalization, Other)
  Sender: FDA-Public Use
  Company Number: PHHY2015GR177875

PATIENT
  Age: 54 Year
  Sex: Female

DRUGS (21)
  1. ERIBULIN [Suspect]
     Active Substance: ERIBULIN
     Indication: METASTASES TO BONE
  2. CARBOPLATIN. [Suspect]
     Active Substance: CARBOPLATIN
     Indication: METASTASES TO BONE
  3. LIPOSOMAL DOXORUBICIN HCL [Suspect]
     Active Substance: DOXORUBICIN HYDROCHLORIDE
     Indication: INVASIVE DUCTAL BREAST CARCINOMA
     Dosage: 1 DF, CYCLIC
     Route: 065
     Dates: start: 2008, end: 2008
  4. ZOLEDRONATE [Suspect]
     Active Substance: ZOLEDRONIC ACID
     Indication: INVASIVE DUCTAL BREAST CARCINOMA
     Dosage: 1 DF, CYCLIC
     Route: 042
     Dates: start: 2008, end: 2008
  5. DOCETAXEL. [Suspect]
     Active Substance: DOCETAXEL
     Indication: INVASIVE DUCTAL BREAST CARCINOMA
     Dosage: 1 DF, CYCLIC
     Route: 042
     Dates: start: 2008, end: 2008
  6. VINORELBINE [Suspect]
     Active Substance: VINORELBINE\VINORELBINE TARTRATE
     Indication: INVASIVE DUCTAL BREAST CARCINOMA
     Dosage: 1 DF, CYCLIC
     Route: 065
     Dates: start: 2008, end: 2008
  7. LETROZOLE. [Concomitant]
     Active Substance: LETROZOLE
     Indication: METASTASES TO BONE
     Dosage: UNK
     Route: 042
  8. CYCLOPHOSPHAMIDE. [Suspect]
     Active Substance: CYCLOPHOSPHAMIDE
     Indication: INVASIVE DUCTAL BREAST CARCINOMA
     Dosage: 1 DF, CYCLIC
     Route: 065
  9. BEVACIZUMAB. [Suspect]
     Active Substance: BEVACIZUMAB
     Indication: METASTASES TO BONE
  10. CAPECITABINE. [Suspect]
     Active Substance: CAPECITABINE
     Indication: INVASIVE DUCTAL BREAST CARCINOMA
     Dosage: 1 DF, CYCLIC
     Route: 042
     Dates: start: 2008, end: 2008
  11. ERIBULIN [Suspect]
     Active Substance: ERIBULIN
     Indication: INVASIVE DUCTAL BREAST CARCINOMA
     Dosage: 1 DF, CYCLIC
     Route: 042
     Dates: start: 2008, end: 2008
  12. CARBOPLATIN. [Suspect]
     Active Substance: CARBOPLATIN
     Indication: INVASIVE DUCTAL BREAST CARCINOMA
     Dosage: 1 DF, CYCLIC
     Route: 065
     Dates: end: 2008
  13. NOVANTRONE [Suspect]
     Active Substance: MITOXANTRONE HYDROCHLORIDE
     Indication: INVASIVE DUCTAL BREAST CARCINOMA
     Dosage: 1 DF, CYCLIC
     Route: 065
  14. 5-FLUOROURACIL [Suspect]
     Active Substance: FLUOROURACIL
     Indication: INVASIVE DUCTAL BREAST CARCINOMA
     Dosage: 1 DF, CYCLIC
     Route: 065
  15. PACLITAXEL. [Suspect]
     Active Substance: PACLITAXEL
     Indication: INVASIVE DUCTAL BREAST CARCINOMA
     Dosage: 1 DF, CYCLIC
     Route: 065
     Dates: start: 2008, end: 2008
  16. GEMCITABINE [Suspect]
     Active Substance: GEMCITABINE\GEMCITABINE HYDROCHLORIDE
     Indication: INVASIVE DUCTAL BREAST CARCINOMA
     Dosage: 1 DF, CYCLIC
     Route: 065
     Dates: start: 2008, end: 2008
  17. DOCETAXEL. [Suspect]
     Active Substance: DOCETAXEL
     Indication: METASTASES TO BONE
  18. INIPARIB [Suspect]
     Active Substance: INIPARIB
     Indication: INVASIVE DUCTAL BREAST CARCINOMA
     Dosage: 1 DF, CYCLIC
     Route: 042
     Dates: start: 2008, end: 2008
  19. ERIBULIN [Suspect]
     Active Substance: ERIBULIN
     Indication: METASTASES TO BONE
  20. INIPARIB [Suspect]
     Active Substance: INIPARIB
     Indication: METASTASES TO BONE
  21. BEVACIZUMAB. [Suspect]
     Active Substance: BEVACIZUMAB
     Indication: INVASIVE DUCTAL BREAST CARCINOMA
     Dosage: 1 DF, CYCLIC
     Route: 065
     Dates: start: 2008, end: 2008

REACTIONS (6)
  - Metastases to bone marrow [Unknown]
  - Thrombocytopenia [Unknown]
  - Product use in unapproved indication [Unknown]
  - Anaemia [Unknown]
  - Malignant neoplasm progression [Unknown]
  - Invasive ductal breast carcinoma [Unknown]

NARRATIVE: CASE EVENT DATE: 2008
